FAERS Safety Report 15407135 (Version 1)
Quarter: 2020Q3

REPORT INFORMATION
  Report Type: Spontaneous
  Country: SG (occurrence: SG)
  Receive Date: 20180920
  Receipt Date: 20180920
  Transmission Date: 20201105
  Serious: Yes (Hospitalization)
  Sender: FDA-Public Use
  Company Number: IND-SG-009507513-1809SGP008127

PATIENT
  Age: 47 Year
  Sex: Female

DRUGS (1)
  1. ARCOXIA [Suspect]
     Active Substance: ETORICOXIB
     Dosage: UNK
     Route: 048

REACTIONS (1)
  - Swelling [Unknown]

NARRATIVE: CASE EVENT DATE: 20160101
